FAERS Safety Report 11241700 (Version 2)
Quarter: 2015Q3

REPORT INFORMATION
  Report Type: Report from Study
  Country: DE (occurrence: DE)
  Receive Date: 20150706
  Receipt Date: 20150709
  Transmission Date: 20151125
  Serious: Yes (Hospitalization)
  Sender: FDA-Public Use
  Company Number: US-ASTRAZENECA-2015SE64994

PATIENT
  Age: 10 Month
  Sex: Male
  Weight: 8.3 kg

DRUGS (2)
  1. SYNAGIS [Suspect]
     Active Substance: PALIVIZUMAB
     Indication: ANTIVIRAL PROPHYLAXIS
     Route: 030
     Dates: start: 20141210, end: 20150318
  2. VITAMIN D WITH FLUORID [Concomitant]
     Indication: PRODUCT USED FOR UNKNOWN INDICATION
     Dates: start: 20140414

REACTIONS (5)
  - General physical health deterioration [Recovered/Resolved]
  - Oxygen saturation decreased [Recovering/Resolving]
  - Tachycardia [Unknown]
  - Respiratory syncytial virus bronchitis [Recovered/Resolved]
  - Pharyngeal erythema [Recovering/Resolving]

NARRATIVE: CASE EVENT DATE: 201502
